FAERS Safety Report 17843763 (Version 2)
Quarter: 2020Q2

REPORT INFORMATION
  Report Type: Spontaneous
  Country: JP (occurrence: JP)
  Receive Date: 20200531
  Receipt Date: 20200605
  Transmission Date: 20200714
  Serious: Yes (Death, Other)
  Sender: FDA-Public Use
  Company Number: JP-BEH-2020118110

PATIENT
  Sex: Female

DRUGS (7)
  1. ALBUMIN HUMAN (INN) [Suspect]
     Active Substance: ALBUMIN HUMAN
     Indication: HYPOPROTEINAEMIA
     Dosage: 50 MILLILITER
     Route: 065
     Dates: start: 19951018
  2. GONADOTROPHIN HUMAN MENOPAUSAL [Concomitant]
     Active Substance: GONADOTROPHIN, CHORIONIC
     Dosage: 150 INTERNATIONAL UNIT
     Route: 065
     Dates: start: 19951007, end: 19951010
  3. SALINE [SODIUM CHLORIDE] [Concomitant]
     Active Substance: SODIUM CHLORIDE
     Dosage: 2500-3000 ML PER DAY
     Route: 065
     Dates: start: 19951016, end: 19951019
  4. FERTINORM P [Concomitant]
     Dosage: 150 INTERNATIONAL UNIT
     Route: 030
     Dates: start: 19951001
  5. HUMAN CHORIONIC GONADOTROPIN [Concomitant]
     Active Substance: GONADOTROPHIN, CHORIONIC
     Dosage: UNK
     Route: 065
     Dates: start: 19951011
  6. ALBUMIN HUMAN (INN) [Suspect]
     Active Substance: ALBUMIN HUMAN
     Dosage: 950 MILLILITER
     Route: 065
     Dates: start: 19951019, end: 19951020
  7. CLOMIPHENE [CLOMIFENE] [Concomitant]
     Dosage: 2 CYCLES
     Route: 065
     Dates: start: 19950711

REACTIONS (12)
  - Volume blood increased [Unknown]
  - Overdose [Unknown]
  - Respiratory arrest [Unknown]
  - Multiple organ dysfunction syndrome [Fatal]
  - Cardiac arrest [Unknown]
  - Drug ineffective [Unknown]
  - Loss of consciousness [Unknown]
  - Overdose [Fatal]
  - Cardiac failure [Unknown]
  - Pulmonary oedema [Unknown]
  - Cardiac arrest [Unknown]
  - Transfusion-related circulatory overload [Unknown]

NARRATIVE: CASE EVENT DATE: 199510
